FAERS Safety Report 11121071 (Version 1)
Quarter: 2015Q2

REPORT INFORMATION
  Report Type: Spontaneous
  Country: None (occurrence: None)
  Receive Date: 20150518
  Receipt Date: 20150518
  Transmission Date: 20150821
  Serious: Yes (Death, Hospitalization)
  Sender: FDA-Public Use
  Company Number: None

PATIENT
  Age: 9 Year
  Sex: Male
  Weight: 47.8 kg

DRUGS (8)
  1. ONCASPAR [Suspect]
     Active Substance: PEGASPARGASE
     Dates: end: 20150423
  2. CYCLOPHOSPHAMIDE. [Suspect]
     Active Substance: CYCLOPHOSPHAMIDE
     Dates: end: 20150506
  3. VINCRISTINE SULFATE. [Suspect]
     Active Substance: VINCRISTINE SULFATE
     Dates: end: 20150430
  4. DAUNORUBICIN [Suspect]
     Active Substance: DAUNORUBICIN
     Dates: end: 20150325
  5. DEXAMETHASONE. [Suspect]
     Active Substance: DEXAMETHASONE
     Dates: end: 20150325
  6. METHOTREXATE [Suspect]
     Active Substance: METHOTREXATE
     Dates: end: 20150430
  7. MERCAPTOPURINE. [Suspect]
     Active Substance: MERCAPTOPURINE
     Dates: end: 20150509
  8. CYTARABINE. [Suspect]
     Active Substance: CYTARABINE
     Dates: end: 20150509

REACTIONS (17)
  - Pancreatitis [None]
  - Vomiting [None]
  - Abdominal pain [None]
  - Hypotension [None]
  - Hypothermia [None]
  - No therapeutic response [None]
  - Anuria [None]
  - Feeling hot [None]
  - Hepatic steatosis [None]
  - Electrolyte imbalance [None]
  - Bradycardia [None]
  - Hypoglycaemia [None]
  - Hypophagia [None]
  - Pleural effusion [None]
  - Ascites [None]
  - Gastrointestinal inflammation [None]
  - Dialysis [None]

NARRATIVE: CASE EVENT DATE: 20150510
